FAERS Safety Report 17214746 (Version 1)
Quarter: 2019Q4

REPORT INFORMATION
  Report Type: Report from Study
  Country: US (occurrence: US)
  Receive Date: 20191230
  Receipt Date: 20191230
  Transmission Date: 20200122
  Serious: Yes (Other)
  Sender: FDA-Public Use
  Company Number: US-GLAXOSMITHKLINE-2019-TSO02822-US

PATIENT
  Age: 68 Year
  Sex: Female
  Weight: 49 kg

DRUGS (8)
  1. NIRAPARIB [Suspect]
     Active Substance: NIRAPARIB
     Dosage: 200 MG, HS W/OUT FOOD
     Dates: start: 20190817
  2. NIRAPARIB [Suspect]
     Active Substance: NIRAPARIB
     Dosage: 200 MG, HS W/OUT FOOD
  3. NIRAPARIB [Suspect]
     Active Substance: NIRAPARIB
     Dosage: 200 MG HS WITHOUT FOOD
     Route: 048
  4. CLARITIN (CETIRIZINE) [Concomitant]
     Indication: PRODUCT USED FOR UNKNOWN INDICATION
  5. NIRAPARIB [Suspect]
     Active Substance: NIRAPARIB
     Dosage: 200 MG, EVERY OTHER DAY
     Dates: start: 20190810
  6. NIRAPARIB [Suspect]
     Active Substance: NIRAPARIB
     Indication: OVARIAN CANCER
     Dosage: 100 MG, EVERY OTHER DAY
     Route: 048
     Dates: start: 20190802
  7. FLONASE [Concomitant]
     Active Substance: FLUTICASONE PROPIONATE
     Indication: PRODUCT USED FOR UNKNOWN INDICATION
  8. AVASTIN [Concomitant]
     Active Substance: BEVACIZUMAB
     Indication: PRODUCT USED FOR UNKNOWN INDICATION

REACTIONS (15)
  - Underdose [Unknown]
  - Dysphonia [Not Recovered/Not Resolved]
  - Constipation [Recovered/Resolved]
  - Gastritis [Unknown]
  - Blood pressure increased [Recovered/Resolved]
  - Weight decreased [Unknown]
  - Sinus congestion [Recovering/Resolving]
  - Oropharyngeal pain [Not Recovered/Not Resolved]
  - Nausea [Unknown]
  - Hernia [Unknown]
  - Vomiting [Not Recovered/Not Resolved]
  - Oesophageal disorder [Unknown]
  - Cough [Not Recovered/Not Resolved]
  - Inappropriate schedule of product administration [Unknown]
  - Product dose omission [Unknown]

NARRATIVE: CASE EVENT DATE: 20190802
